FAERS Safety Report 12677142 (Version 1)
Quarter: 2016Q3

REPORT INFORMATION
  Report Type: Spontaneous
  Country: US (occurrence: US)
  Receive Date: 20160823
  Receipt Date: 20160823
  Transmission Date: 20161109
  Serious: No
  Sender: FDA-Public Use
  Company Number: US-TEVA-624924USA

PATIENT
  Sex: Female

DRUGS (1)
  1. VENLAFAXINE [Suspect]
     Active Substance: VENLAFAXINE HYDROCHLORIDE
     Indication: MENOPAUSAL SYMPTOMS
     Route: 065
     Dates: start: 2003

REACTIONS (7)
  - Headache [Unknown]
  - Drug ineffective for unapproved indication [Unknown]
  - Tremor [Unknown]
  - Nausea [Unknown]
  - Malaise [Unknown]
  - Product use issue [Unknown]
  - Hot flush [Unknown]

NARRATIVE: CASE EVENT DATE: 2003
